FAERS Safety Report 4928493-1 (Version None)
Quarter: 2006Q1

REPORT INFORMATION
  Report Type: 
  Country: None (occurrence: None)
  Receive Date: 20060223
  Receipt Date: 20060217
  Transmission Date: 20060701
  Serious: Yes (Death)
  Sender: FDA-Public Use
  Company Number: 222254

PATIENT
  Age: 70 Year
  Sex: Female

DRUGS (2)
  1. ACTIVACIN (ALTEPLASE) PWDR + SOLVENT, INFUSION SOLN [Suspect]
     Indication: CEREBRAL INFARCTION
     Dosage: 33.5 MG, SINGLE, INTRAVENOUS
     Route: 042
     Dates: start: 20051230, end: 20051230
  2. LACTATED RINGER'S (RINGER'S INJECTION, LACTATED) [Concomitant]

REACTIONS (4)
  - BLOOD PRESSURE DIASTOLIC INCREASED [None]
  - CARDIOGENIC SHOCK [None]
  - GENERAL PHYSICAL HEALTH DETERIORATION [None]
  - THERAPY NON-RESPONDER [None]
